FAERS Safety Report 21517836 (Version 3)
Quarter: 2023Q2

REPORT INFORMATION
  Report Type: Report from Study
  Country: US (occurrence: US)
  Receive Date: 20221028
  Receipt Date: 20230606
  Transmission Date: 20230722
  Serious: Yes (Hospitalization, Other)
  Sender: FDA-Public Use
  Company Number: US-ABBVIE-4176042

PATIENT
  Age: 72 Year
  Sex: Female

DRUGS (1)
  1. SKYRIZI [Suspect]
     Active Substance: RISANKIZUMAB-RZAA
     Indication: Psoriasis
     Route: 058
     Dates: start: 20200819

REACTIONS (8)
  - Atrial fibrillation [Unknown]
  - Musculoskeletal stiffness [Unknown]
  - Arthralgia [Unknown]
  - Chronic obstructive pulmonary disease [Recovering/Resolving]
  - Gastrooesophageal reflux disease [Recovering/Resolving]
  - Insomnia [Unknown]
  - Pruritus [Not Recovered/Not Resolved]
  - Medical device implantation [Unknown]

NARRATIVE: CASE EVENT DATE: 20221101
